FAERS Safety Report 19080357 (Version 2)
Quarter: 2021Q2

REPORT INFORMATION
  Report Type: Report from Study
  Country: US (occurrence: US)
  Receive Date: 20210331
  Receipt Date: 20210409
  Transmission Date: 20210717
  Serious: Yes (Hospitalization)
  Sender: FDA-Public Use
  Company Number: US-EXELIXIS-CABO-21038857

PATIENT
  Age: 49 Year
  Sex: Male

DRUGS (1)
  1. CABOMETYX [Suspect]
     Active Substance: CABOZANTINIB S-MALATE
     Indication: HEPATIC CANCER
     Dosage: 60 MG, QD
     Route: 048
     Dates: start: 202103

REACTIONS (10)
  - Vomiting [Unknown]
  - Fatigue [Unknown]
  - Diabetic complication [Unknown]
  - Stomatitis [Unknown]
  - Diarrhoea [Unknown]
  - Nausea [Unknown]
  - Vomiting [Unknown]
  - Hypertension [Recovered/Resolved]
  - Dehydration [Unknown]
  - Nausea [Unknown]

NARRATIVE: CASE EVENT DATE: 20210319
